FAERS Safety Report 23080324 (Version 3)
Quarter: 2023Q4

REPORT INFORMATION
  Report Type: Spontaneous
  Country: US (occurrence: US)
  Receive Date: 20231018
  Receipt Date: 20231211
  Transmission Date: 20240110
  Serious: No
  Sender: FDA-Public Use
  Company Number: US-BIOVITRUM-2023-US-015917

PATIENT
  Age: 7 Month
  Sex: Male

DRUGS (2)
  1. SYNAGIS [Suspect]
     Active Substance: PALIVIZUMAB
     Indication: Premature baby
     Dosage: EVERY 28 DAYS - 30 DAYS
     Route: 030
     Dates: start: 20230906
  2. SYNAGIS [Suspect]
     Active Substance: PALIVIZUMAB
     Dosage: EVERY 28 DAYS - 30 DAYS
     Route: 030
     Dates: start: 20230712, end: 20231105

REACTIONS (4)
  - Cough [Unknown]
  - Nasal congestion [Unknown]
  - Nasopharyngitis [Unknown]
  - Influenza virus test positive [Unknown]

NARRATIVE: CASE EVENT DATE: 20231010
